FAERS Safety Report 23324313 (Version 2)
Quarter: 2024Q1

REPORT INFORMATION
  Report Type: Other
  Country: JP (occurrence: None)
  Receive Date: 20231221
  Receipt Date: 20240108
  Transmission Date: 20240409
  Serious: Yes (Death, Other)
  Sender: FDA-Public Use
  Company Number: JP-ROCHE-3478466

PATIENT
  Age: 49 Year
  Sex: Male

DRUGS (2)
  1. RITUXAN [Suspect]
     Active Substance: RITUXIMAB
     Indication: Mantle cell lymphoma
     Route: 041
  2. PREDNISOLONE [Suspect]
     Active Substance: PREDNISOLONE
     Indication: Mantle cell lymphoma
     Route: 065

REACTIONS (3)
  - SARS-CoV-2 viraemia [Fatal]
  - Immunodeficiency [Unknown]
  - Pulmonary toxicity [Unknown]
